FAERS Safety Report 24071154 (Version 1)
Quarter: 2024Q3

REPORT INFORMATION
  Report Type: Spontaneous
  Country: ID (occurrence: ID)
  Receive Date: 20240710
  Receipt Date: 20240710
  Transmission Date: 20241017
  Serious: No
  Sender: ROCHE
  Company Number: ID-ROCHE-3577412

PATIENT
  Age: 70 Year
  Sex: Male

DRUGS (4)
  1. VABYSMO [Suspect]
     Active Substance: FARICIMAB\FARICIMAB-SVOA
     Indication: Neovascular age-related macular degeneration
     Dosage: 4 INJECTIONS
     Route: 065
  2. VABYSMO [Suspect]
     Active Substance: FARICIMAB\FARICIMAB-SVOA
     Indication: Polypoidal choroidal vasculopathy
  3. AFLIBERCEPT [Suspect]
     Active Substance: AFLIBERCEPT
     Indication: Neovascular age-related macular degeneration
     Route: 065
  4. AFLIBERCEPT [Suspect]
     Active Substance: AFLIBERCEPT
     Indication: Polypoidal choroidal vasculopathy

REACTIONS (1)
  - Retinal haemorrhage [Unknown]
